FAERS Safety Report 23728261 (Version 1)
Quarter: 2024Q2

REPORT INFORMATION
  Report Type: Spontaneous
  Country: CA (occurrence: CA)
  Receive Date: 20240410
  Receipt Date: 20240410
  Transmission Date: 20240716
  Serious: Yes (Other)
  Sender: FDA-Public Use
  Company Number: CA-TEVA-VS-3181046

PATIENT
  Age: 62 Year
  Sex: Female

DRUGS (9)
  1. CIPROFLOXACIN [Suspect]
     Active Substance: CIPROFLOXACIN
     Indication: Tooth infection
     Route: 048
  2. ATROVENT HFA [Concomitant]
     Active Substance: IPRATROPIUM BROMIDE
     Indication: Product used for unknown indication
     Dosage: DOSE FORM: METERED-DOSE (AEROSOL)
     Route: 065
  3. FLOVENT HFA [Concomitant]
     Active Substance: FLUTICASONE PROPIONATE
     Indication: Product used for unknown indication
     Dosage: DOSE FORM: METERED-DOSE (AEROSOL)
     Route: 065
  4. IRON [Concomitant]
     Active Substance: IRON
     Indication: Product used for unknown indication
     Dosage: DOSE FORM: LIQUID
     Route: 065
  5. MONTELUKAST [Concomitant]
     Active Substance: MONTELUKAST SODIUM
     Indication: Product used for unknown indication
     Route: 065
  6. PANTOPRAZOLE MAGNESIUM [Concomitant]
     Active Substance: PANTOPRAZOLE MAGNESIUM
     Indication: Product used for unknown indication
     Route: 065
  7. RECOVERY [Concomitant]
     Active Substance: MENTHOL
     Indication: Product used for unknown indication
     Route: 065
  8. VIADERM KC [Concomitant]
     Indication: Product used for unknown indication
     Route: 065
  9. ZINC [Concomitant]
     Active Substance: PYRITHIONE ZINC\ZINC\ZINC CHLORIDE
     Indication: Product used for unknown indication
     Route: 065

REACTIONS (4)
  - Agitation [Unknown]
  - Dizziness [Unknown]
  - Paranoia [Unknown]
  - Product dose omission issue [Unknown]
